FAERS Safety Report 7035158-1 (Version None)
Quarter: 2010Q4

REPORT INFORMATION
  Report Type: 
  Country: None (occurrence: None)
  Receive Date: 20101008
  Receipt Date: 20101006
  Transmission Date: 20110411
  Serious: Yes (Death)
  Sender: FDA-Public Use
  Company Number: CH-BAYER-201041526GPV

PATIENT
  Age: 89 Year
  Sex: Male

DRUGS (11)
  1. CIPROFLOXACIN [Suspect]
     Indication: ARTHRITIS BACTERIAL
     Dosage: TOTAL DAILY DOSE: 1000 MG
     Route: 048
     Dates: start: 20100425, end: 20100504
  2. CO-AMOXI [Suspect]
     Indication: ARTHRITIS BACTERIAL
     Dosage: TOTAL DAILY DOSE: 3600 MG
     Route: 041
     Dates: start: 20100410, end: 20100424
  3. CLINDAMYCIN HCL [Suspect]
     Indication: ARTHRITIS BACTERIAL
     Dosage: TOTAL DAILY DOSE: 1800 MG
     Route: 048
     Dates: start: 20100425, end: 20100504
  4. TORASEMID [Concomitant]
     Dosage: TOTAL DAILY DOSE: 5 MG
     Route: 048
  5. DIGOXIN [Concomitant]
     Dosage: TOTAL DAILY DOSE: 0.125 MG
     Route: 048
  6. SINTROM [Concomitant]
     Dosage: TOTAL DAILY DOSE: 1 MG
     Route: 048
  7. ALDACTONE [Concomitant]
     Dosage: TOTAL DAILY DOSE: 12.5 MG
     Route: 048
  8. ANXIOLIT [Concomitant]
     Dosage: TOTAL DAILY DOSE: 15 MG
     Route: 048
  9. EUTHYROX [Concomitant]
     Dosage: TOTAL DAILY DOSE: 50 ?G
     Route: 048
     Dates: start: 20100410
  10. NOVOTHYRAL [Concomitant]
     Dosage: AT HOME
  11. CONCOR [Concomitant]
     Dosage: TOTAL DAILY DOSE: 5 MG
     Route: 048

REACTIONS (9)
  - CHOLESTASIS [None]
  - CONJUNCTIVITIS [None]
  - DRUG RASH WITH EOSINOPHILIA AND SYSTEMIC SYMPTOMS [None]
  - EOSINOPHILIA [None]
  - LIVER DISORDER [None]
  - RASH MACULO-PAPULAR [None]
  - RASH PAPULAR [None]
  - RASH PRURITIC [None]
  - RENAL FAILURE ACUTE [None]
